FAERS Safety Report 18071609 (Version 1)
Quarter: 2020Q3

REPORT INFORMATION
  Report Type: Spontaneous
  Country: US (occurrence: US)
  Receive Date: 20200724
  Receipt Date: 20200724
  Transmission Date: 20201103
  Serious: Yes (Disabling)
  Sender: FDA-Public Use
  Company Number: None

PATIENT
  Age: 75 Year
  Sex: Male
  Weight: 81.45 kg

DRUGS (5)
  1. ATORVASTATIN CALCIUM TABLETS, USP 40 MG [Suspect]
     Active Substance: ATORVASTATIN CALCIUM
     Indication: ARTERIOSCLEROSIS
     Dosage: ?          QUANTITY:1 TABLET(S);?
     Route: 048
  2. LOSARTAN. [Concomitant]
     Active Substance: LOSARTAN
  3. JANUVIA [Concomitant]
     Active Substance: SITAGLIPTIN PHOSPHATE
  4. GLIPIZIDE. [Concomitant]
     Active Substance: GLIPIZIDE
  5. IPRESERVISION [Concomitant]

REACTIONS (8)
  - Muscle spasms [None]
  - Hypoaesthesia [None]
  - Myositis [None]
  - Muscle rupture [None]
  - Tendon pain [None]
  - Tendon rupture [None]
  - Pain in extremity [None]
  - Muscle injury [None]

NARRATIVE: CASE EVENT DATE: 20200702
